FAERS Safety Report 5178923-8 (Version None)
Quarter: 2006Q4

REPORT INFORMATION
  Report Type: 
  Country: None (occurrence: None)
  Receive Date: 20061213
  Receipt Date: 20061213
  Transmission Date: 20070319
  Serious: Yes (Hospitalization)
  Sender: FDA-Public Use
  Company Number: None

PATIENT
  Age: 82 Year
  Sex: Male
  Weight: 76.3 kg

DRUGS (5)
  1. FELODIPINE [Suspect]
     Dosage: FIRST PAGE  OROPHARINGE
     Route: 049
  2. LISINOPRIL [Suspect]
     Dosage: FIRST PAGE  PO
     Route: 048
  3. FLOMAX [Suspect]
  4. HYDROCHLOROTHIAZIDE [Suspect]
  5. METOPROLOL SUCCINATE [Suspect]

REACTIONS (7)
  - DYSARTHRIA [None]
  - DYSKINESIA [None]
  - DYSPNOEA EXERTIONAL [None]
  - HYPOTENSION [None]
  - MYOCARDIAL INFARCTION [None]
  - ORTHOSTATIC HYPOTENSION [None]
  - SYNCOPE [None]
